FAERS Safety Report 5285988-1 (Version None)
Quarter: 2007Q2

REPORT INFORMATION
  Report Type: 
  Country: None (occurrence: None)
  Receive Date: 20070404
  Receipt Date: 20070323
  Transmission Date: 20071010
  Serious: Yes (Other)
  Sender: FDA-Public Use
  Company Number: PFIZER INC-2007010450

PATIENT
  Age: 66 Year
  Sex: Male

DRUGS (6)
  1. NORVASC [Suspect]
     Indication: HYPERTENSION
     Dosage: DAILY DOSE:2.5MG
     Route: 048
  2. NORVASC [Suspect]
     Dosage: DAILY DOSE:5MG
     Route: 048
  3. DIOVAN [Suspect]
     Indication: HYPERTENSION
     Dosage: DAILY DOSE:80MG
     Route: 048
  4. DIOVAN [Suspect]
     Dosage: DAILY DOSE:40MG
     Route: 048
  5. BEZATOL - SLOW RELEASE [Concomitant]
     Indication: HYPERLIPIDAEMIA
     Route: 048
  6. ALLOPURINOL [Concomitant]
     Indication: HYPERURICAEMIA
     Route: 048

REACTIONS (2)
  - BLOOD CREATININE INCREASED [None]
  - BLOOD POTASSIUM INCREASED [None]
